FAERS Safety Report 19174723 (Version 3)
Quarter: 2021Q2

REPORT INFORMATION
  Report Type: Spontaneous
  Country: CA (occurrence: CA)
  Receive Date: 20210423
  Receipt Date: 20210519
  Transmission Date: 20210717
  Serious: Yes (Hospitalization, Other)
  Sender: FDA-Public Use
  Company Number: CA-BAYER-2021-122707

PATIENT
  Sex: Female

DRUGS (1)
  1. MIRENA [Suspect]
     Active Substance: LEVONORGESTREL
     Dosage: UNK
     Route: 064

REACTIONS (5)
  - Jaundice neonatal [Recovering/Resolving]
  - Hypoglycaemia neonatal [Recovering/Resolving]
  - Premature baby [Recovered/Resolved]
  - Transient tachypnoea of the newborn [Recovered/Resolved]
  - Foetal exposure during pregnancy [None]

NARRATIVE: CASE EVENT DATE: 202103
